FAERS Safety Report 5512204-5 (Version None)
Quarter: 2007Q4

REPORT INFORMATION
  Report Type: 
  Country: None (occurrence: None)
  Receive Date: 20071112
  Receipt Date: 20071106
  Transmission Date: 20080405
  Serious: Yes (Death, Hospitalization)
  Sender: FDA-Public Use
  Company Number: PHBS2007TW03675

PATIENT
  Age: 74 Year
  Sex: Male
  Weight: 45 kg

DRUGS (1)
  1. DIOVAN HCT [Suspect]
     Indication: HYPERTENSION
     Route: 048
     Dates: start: 20060628

REACTIONS (1)
  - GASTRIC HAEMORRHAGE [None]
